FAERS Safety Report 9444331 (Version 2)
Quarter: 2014Q1

REPORT INFORMATION
  Report Type: Report from Study
  Country: DE (occurrence: DE)
  Receive Date: 20130807
  Receipt Date: 20140224
  Transmission Date: 20141002
  Serious: Yes (Death)
  Sender: FDA-Public Use
  Company Number: DE-ROCHE-1258223

PATIENT
  Age: 80 Year
  Sex: Female

DRUGS (7)
  1. TOCILIZUMAB [Suspect]
     Indication: RHEUMATOID ARTHRITIS
     Dosage: VISTI T1
     Route: 065
     Dates: start: 20091110
  2. TOCILIZUMAB [Suspect]
     Dosage: VISTI T2
     Route: 065
     Dates: start: 20100216
  3. TOCILIZUMAB [Suspect]
     Dosage: VISTI T3
     Route: 065
     Dates: start: 20100726
  4. TOCILIZUMAB [Suspect]
     Dosage: VISTI T4
     Route: 065
     Dates: start: 20110118
  5. TOCILIZUMAB [Suspect]
     Dosage: VISTI T5
     Route: 065
     Dates: start: 20110712
  6. TOCILIZUMAB [Suspect]
     Dosage: VISTI T6
     Route: 065
     Dates: start: 20120110
  7. TOCILIZUMAB [Suspect]
     Dosage: VISTI T6
     Route: 065
     Dates: start: 20120110

REACTIONS (1)
  - Cardiac arrest [Fatal]
